FAERS Safety Report 25918543 (Version 1)
Quarter: 2025Q4

REPORT INFORMATION
  Report Type: Other
  Country: CA (occurrence: CA)
  Receive Date: 20251014
  Receipt Date: 20251014
  Transmission Date: 20260117
  Serious: Yes (Life-Threatening, Other)
  Sender: APOTEX
  Company Number: CA-PGRTD-001153874

PATIENT
  Age: 7 Year
  Sex: Male
  Weight: 20.5 kg

DRUGS (7)
  1. BUSULFAN [Suspect]
     Active Substance: BUSULFAN
     Indication: Bone marrow transplant
     Dosage: 110 MILLIGRAM, 1 EVERY 3 HOURS
     Route: 042
  2. FLUDARABINE [Suspect]
     Active Substance: FLUDARABINE PHOSPHATE
     Indication: Bone marrow transplant
     Dosage: 1 EVERY 30 MINUTES
     Route: 042
  3. PREDNISONE [Concomitant]
     Active Substance: PREDNISONE
     Route: 065
  4. CALCIUM [Concomitant]
     Active Substance: CALCIUM
     Dosage: 500 (UNIT NOT REPORTED)
     Route: 065
  5. CHOLECALCIFEROL [Concomitant]
     Active Substance: CHOLECALCIFEROL
     Route: 065
  6. SIROLIMUS [Concomitant]
     Active Substance: SIROLIMUS
     Route: 065
  7. USTEKINUMAB [Concomitant]
     Active Substance: USTEKINUMAB
     Route: 065

REACTIONS (4)
  - Aplastic anaemia [Recovered/Resolved]
  - Neutropenia [Recovered/Resolved]
  - Thrombocytopenia [Recovered/Resolved]
  - Mucosal inflammation [Recovered/Resolved]
